FAERS Safety Report 9830250 (Version 1)
Quarter: 2014Q1

REPORT INFORMATION
  Report Type: Spontaneous
  Country: US (occurrence: US)
  Receive Date: 20140120
  Receipt Date: 20140120
  Transmission Date: 20141002
  Serious: No
  Sender: FDA-Public Use
  Company Number: US-B.I. PHARMACEUTICALS,INC./RIDGEFIELD-2014-BI-01389BP

PATIENT
  Sex: Male
  Weight: 109 kg

DRUGS (6)
  1. PRADAXA [Suspect]
     Indication: ATRIAL FIBRILLATION
     Dosage: 300 MG
     Route: 048
     Dates: start: 2011
  2. ALLOPURINAL [Concomitant]
     Indication: NEPHROLITHIASIS
     Dosage: 300 MG
     Route: 048
  3. ALLOPURINAL [Concomitant]
     Indication: BLOOD URIC ACID INCREASED
  4. LIPITOR [Concomitant]
     Indication: BLOOD CHOLESTEROL INCREASED
     Dosage: 20 MG
     Route: 048
  5. METOPROLOL [Concomitant]
     Indication: HYPERTENSION
     Dosage: 100 MG
     Route: 048
  6. LOSARTAN [Concomitant]
     Indication: HYPERTENSION
     Dosage: 60 MG
     Route: 048

REACTIONS (2)
  - Nail injury [Recovered/Resolved]
  - Rectal haemorrhage [Not Recovered/Not Resolved]
